FAERS Safety Report 16285817 (Version 1)
Quarter: 2019Q2

REPORT INFORMATION
  Report Type: Spontaneous
  Country: US (occurrence: US)
  Receive Date: 20190506
  Receipt Date: 20190506
  Transmission Date: 20190711
  Serious: No
  Sender: FDA-Public Use
  Company Number: None

PATIENT
  Age: 61 Year
  Sex: Female
  Weight: 81 kg

DRUGS (11)
  1. BUPIRONE [Concomitant]
  2. SUMATRIPTAN. [Concomitant]
     Active Substance: SUMATRIPTAN
  3. BENADRYL [Concomitant]
     Active Substance: DIPHENHYDRAMINE HYDROCHLORIDE
  4. CALCIUM [Concomitant]
     Active Substance: CALCIUM
  5. AJOVY [Suspect]
     Active Substance: FREMANEZUMAB-VFRM
     Indication: MIGRAINE
     Dosage: ?          OTHER FREQUENCY:ONCE A MONTB;OTHER ROUTE:INJECTION IN THIGH?
     Dates: start: 20181217
  6. FIBER [Concomitant]
     Active Substance: PSYLLIUM HUSK
  7. MELATONIN [Concomitant]
     Active Substance: MELATONIN
  8. BUSPIRONE [Concomitant]
     Active Substance: BUSPIRONE HYDROCHLORIDE
  9. XANAX [Concomitant]
     Active Substance: ALPRAZOLAM
  10. METOPROLOL. [Concomitant]
     Active Substance: METOPROLOL
  11. MULTI VITAMIN [Concomitant]
     Active Substance: VITAMINS

REACTIONS (3)
  - Therapy change [None]
  - Alopecia [None]
  - Insurance issue [None]

NARRATIVE: CASE EVENT DATE: 20181217
